FAERS Safety Report 9565089 (Version 2)
Quarter: 2013Q4

REPORT INFORMATION
  Report Type: Report from Study
  Country: US (occurrence: US)
  Receive Date: 20130930
  Receipt Date: 20131008
  Transmission Date: 20140711
  Serious: Yes (Hospitalization, Other)
  Sender: FDA-Public Use
  Company Number: US-ABBVIE-13P-163-1150372-00

PATIENT
  Sex: Female

DRUGS (1)
  1. HUMIRA [Suspect]
     Indication: CROHN^S DISEASE
     Dates: start: 201307

REACTIONS (16)
  - Respiratory failure [Recovered/Resolved]
  - Cardiac arrest [Recovered/Resolved]
  - Nausea [Recovered/Resolved]
  - Vomiting [Recovered/Resolved]
  - Headache [Recovered/Resolved with Sequelae]
  - Abdominal pain [Recovered/Resolved]
  - Dyspepsia [Recovered/Resolved]
  - Hypoaesthesia [Recovered/Resolved]
  - Heart rate irregular [Recovered/Resolved]
  - Asthenia [Recovered/Resolved]
  - Chest discomfort [Recovered/Resolved]
  - Pyrexia [Recovered/Resolved]
  - Influenza like illness [Not Recovered/Not Resolved]
  - Pallor [Recovered/Resolved]
  - Chest discomfort [Not Recovered/Not Resolved]
  - Headache [Not Recovered/Not Resolved]
